FAERS Safety Report 23100379 (Version 1)
Quarter: 2023Q4

REPORT INFORMATION
  Report Type: Other
  Country: CN (occurrence: CN)
  Receive Date: 20231024
  Receipt Date: 20231024
  Transmission Date: 20240110
  Serious: Yes (Life-Threatening, Other)
  Sender: FDA-Public Use
  Company Number: CN-GE HEALTHCARE-2023CSU009309

PATIENT
  Age: 46 Year
  Sex: Female
  Weight: 50 kg

DRUGS (2)
  1. VISIPAQUE [Suspect]
     Active Substance: IODIXANOL
     Indication: Computerised tomogram
     Dosage: 100 GM, SINGLE
     Route: 042
     Dates: start: 20231014, end: 20231014
  2. VISIPAQUE [Suspect]
     Active Substance: IODIXANOL
     Indication: Pulmonary mass

REACTIONS (9)
  - Dysphonia [Recovering/Resolving]
  - Conjunctival hyperaemia [Recovering/Resolving]
  - Confusional state [Recovered/Resolved]
  - Loss of consciousness [Recovered/Resolved]
  - Blood pressure decreased [Recovered/Resolved]
  - Pruritus [Recovering/Resolving]
  - Pallor [Recovering/Resolving]
  - Erythema [Recovering/Resolving]
  - Vomiting [Recovering/Resolving]

NARRATIVE: CASE EVENT DATE: 20231014
